FAERS Safety Report 5481726-8 (Version None)
Quarter: 2007Q4

REPORT INFORMATION
  Report Type: 
  Country: None (occurrence: None)
  Receive Date: 20071010
  Receipt Date: 20071001
  Transmission Date: 20080405
  Serious: Yes (Other)
  Sender: FDA-Public Use
  Company Number: DE-SHR-DE-2007-035878

PATIENT
  Age: 46 Year
  Sex: Female

DRUGS (6)
  1. BETASERON [Suspect]
     Dosage: 250 A?G/DAY, 1X/DAY
     Route: 058
  2. BETASERON [Suspect]
     Dosage: DECREASED DOSE
     Route: 058
  3. BETASERON [Suspect]
     Route: 058
  4. BACLOFEN [Concomitant]
     Dosage: 25 MG, 2X/DAY
  5. METHYLPHENIDATE HCL [Concomitant]
     Dosage: 20 MG, 1X/DAY
  6. SULPRID [Concomitant]
     Dosage: 100 MG, 1X/DAY

REACTIONS (4)
  - FATIGUE [None]
  - HEMIPARESIS [None]
  - HYPERHIDROSIS [None]
  - PYREXIA [None]
